FAERS Safety Report 4884927-2 (Version None)
Quarter: 2006Q1

REPORT INFORMATION
  Report Type: 
  Country: None (occurrence: None)
  Receive Date: 20060117
  Receipt Date: 20060106
  Transmission Date: 20060701
  Serious: Yes (Other)
  Sender: FDA-Public Use
  Company Number: PHBS2005US10792

PATIENT
  Age: 19 Year
  Sex: Female
  Weight: 50 kg

DRUGS (13)
  1. CYCLOSPORINE [Suspect]
     Indication: RENAL TRANSPLANT
     Dosage: SEE IMAGE
  2. CYCLOSPORINE [Suspect]
     Indication: RENAL TRANSPLANT
     Dosage: SEE IMAGE
  3. CYCLOSPORINE [Suspect]
     Indication: RENAL TRANSPLANT
     Dosage: SEE IMAGE
  4. CYCLOSPORINE [Suspect]
     Indication: RENAL TRANSPLANT
     Dosage: SEE IMAGE
  5. CYCLOSPORINE [Suspect]
     Indication: RENAL TRANSPLANT
     Dosage: SEE IMAGE
     Route: 048
  6. CYCLOSPORINE [Suspect]
     Indication: RENAL TRANSPLANT
     Dosage: SEE IMAGE
     Route: 048
  7. CYCLOSPORINE [Suspect]
     Indication: RENAL TRANSPLANT
     Dosage: SEE IMAGE
     Route: 048
  8. PHENYTOIN [Suspect]
     Dosage: 700 MG/D, ORAL
     Route: 048
  9. MYCOPHENOLATE MOFETIL (MYCOPHENOLATE MOFETIL) [Suspect]
     Dosage: SEE IMAGE
     Route: 048
  10. METHYLPREDNISOLONE [Suspect]
     Dosage: 120 MG/D, INTRAVENOUS
     Route: 042
  11. PREDNISONE [Suspect]
     Dosage: 50 MG, QD ORAL
     Route: 048
  12. ANTITHYMOCYTE IMMUNOGLOBULIN (ANTITHYMOCYTE IMMUNOGLOBULIN) [Concomitant]
  13. TACROLIMUS (TACROLIMUS) [Concomitant]

REACTIONS (8)
  - DRUG INTERACTION [None]
  - DRUG LEVEL FLUCTUATING [None]
  - FUNGAL SEPSIS [None]
  - KIDNEY TRANSPLANT REJECTION [None]
  - PATHOGEN RESISTANCE [None]
  - PLASMAPHERESIS [None]
  - PNEUMONIA [None]
  - REFUSAL OF TREATMENT BY PATIENT [None]
